FAERS Safety Report 5839845-X (Version None)
Quarter: 2008Q3

REPORT INFORMATION
  Report Type: 
  Country: None (occurrence: None)
  Receive Date: 20080807
  Receipt Date: 20080728
  Transmission Date: 20090109
  Serious: Yes (Life-Threatening, Hospitalization)
  Sender: FDA-Public Use
  Company Number: OMPQ-PR-0807S-0495

PATIENT
  Sex: Female
  Weight: 136.0791 kg

DRUGS (1)
  1. OMNIPAQUE 140 [Suspect]
     Indication: DRUG USE FOR UNKNOWN INDICATION
     Dosage: 100 ML, SINGLE DOSE, I.V.
     Route: 042
     Dates: start: 20060207, end: 20060207

REACTIONS (4)
  - BURNING SENSATION [None]
  - CONTRAST MEDIA REACTION [None]
  - DYSPNOEA [None]
  - MYOCARDIAL INFARCTION [None]
